FAERS Safety Report 18926118 (Version 2)
Quarter: 2021Q1

REPORT INFORMATION
  Report Type: Other
  Country: HU (occurrence: HU)
  Receive Date: 20210223
  Receipt Date: 20210312
  Transmission Date: 20210420
  Serious: Yes (Other)
  Sender: FDA-Public Use
  Company Number: HU-ROCHE-2772117

PATIENT

DRUGS (1)
  1. RITUXIMAB. [Suspect]
     Active Substance: RITUXIMAB
     Indication: GLOMERULONEPHRITIS MEMBRANOUS
     Route: 065

REACTIONS (3)
  - End stage renal disease [Unknown]
  - Off label use [Unknown]
  - Disease progression [Unknown]
